FAERS Safety Report 6236094-0 (Version None)
Quarter: 2009Q2

REPORT INFORMATION
  Report Type: 
  Country: None (occurrence: None)
  Receive Date: 20090619
  Receipt Date: 20090611
  Transmission Date: 20091009
  Serious: Yes (Other)
  Sender: FDA-Public Use
  Company Number: US-BIOGENIDEC-2009BI018231

PATIENT
  Age: 28 Year
  Sex: Female

DRUGS (1)
  1. TYSABRI [Suspect]
     Indication: MULTIPLE SCLEROSIS
     Route: 042
     Dates: start: 20090413

REACTIONS (6)
  - BRONCHITIS [None]
  - CONJUNCTIVITIS INFECTIVE [None]
  - EAR INFECTION [None]
  - INFLUENZA [None]
  - NASOPHARYNGITIS [None]
  - PYREXIA [None]
